FAERS Safety Report 21471990 (Version 1)
Quarter: 2022Q4

REPORT INFORMATION
  Report Type: Spontaneous
  Country: US (occurrence: None)
  Receive Date: 20221017
  Receipt Date: 20221017
  Transmission Date: 20230112
  Serious: Yes (Other)
  Sender: FDA-Public Use
  Company Number: None

PATIENT
  Age: 11 Year
  Sex: Female
  Weight: 85.28 kg

DRUGS (15)
  1. DEVICE [Suspect]
     Active Substance: DEVICE
     Dates: start: 20110912, end: 2022
  2. ADDERALL [Concomitant]
     Active Substance: AMPHETAMINE ASPARTATE\AMPHETAMINE SULFATE\DEXTROAMPHETAMINE SACCHARATE\DEXTROAMPHETAMINE SULFATE
  3. HYDROXYCHLOROQUINE [Concomitant]
     Active Substance: HYDROXYCHLOROQUINE
  4. PREGABALIN [Concomitant]
     Active Substance: PREGABALIN
  5. MELOXICAM [Concomitant]
     Active Substance: MELOXICAM
  6. METHOCARBAMOL [Concomitant]
     Active Substance: METHOCARBAMOL
  7. SUMATRIPTAM SUCC [Concomitant]
  8. DEPOPROVERA SC [Concomitant]
  9. BOTOX [Concomitant]
  10. TYLENOL ARTHRITIS PAIN [Concomitant]
     Active Substance: ACETAMINOPHEN
  11. IBUPROFEN [Concomitant]
     Active Substance: IBUPROFEN
  12. FOLIC ACID [Concomitant]
     Active Substance: FOLIC ACID
  13. VITAMINS [Concomitant]
     Active Substance: VITAMINS
  14. BIOTIN [Concomitant]
     Active Substance: BIOTIN
  15. COLLAGEN [Concomitant]
     Active Substance: COLLAGEN

REACTIONS (46)
  - Alopecia [None]
  - Alopecia [None]
  - Weight increased [None]
  - Fatigue [None]
  - Haemorrhage [None]
  - Hormone level abnormal [None]
  - Disturbance in attention [None]
  - Migraine [None]
  - Visual impairment [None]
  - Neck pain [None]
  - Lymphadenopathy [None]
  - Autoimmune disorder [None]
  - Rheumatoid arthritis [None]
  - Muscular weakness [None]
  - Muscle tightness [None]
  - Breast pain [None]
  - Implant site pain [None]
  - Burning sensation [None]
  - Tachycardia [None]
  - Pain [None]
  - Inflammation [None]
  - Intervertebral disc protrusion [None]
  - Dry skin [None]
  - Rash [None]
  - Impaired healing [None]
  - Anxiety [None]
  - Depression [None]
  - Amnesia [None]
  - Feeling abnormal [None]
  - Vertigo [None]
  - Paraesthesia [None]
  - Paraesthesia [None]
  - Hypoaesthesia [None]
  - Tinnitus [None]
  - Ear congestion [None]
  - Ear discomfort [None]
  - Pyrexia [None]
  - Night sweats [None]
  - Multiple allergies [None]
  - Chest discomfort [None]
  - Palpitations [None]
  - Gallbladder disorder [None]
  - Irritable bowel syndrome [None]
  - Constipation [None]
  - Diarrhoea [None]
  - Abdominal pain [None]

NARRATIVE: CASE EVENT DATE: 20120110
